FAERS Safety Report 15328598 (Version 10)
Quarter: 2024Q2

REPORT INFORMATION
  Report Type: Report from Study
  Country: CA (occurrence: CA)
  Receive Date: 20180829
  Receipt Date: 20240628
  Transmission Date: 20240716
  Serious: No
  Sender: FDA-Public Use
  Company Number: CA-ROCHE-2175441

PATIENT
  Age: 46 Year
  Sex: Female
  Weight: 91.8 kg

DRUGS (14)
  1. OCREVUS [Suspect]
     Active Substance: OCRELIZUMAB
     Indication: Relapsing-remitting multiple sclerosis
     Dosage: 300 MG AT DAY 0 AND 14, THEN 600 MG EVERY 6 MONTH
     Route: 042
     Dates: start: 20180216
  2. OCREVUS [Suspect]
     Active Substance: OCRELIZUMAB
     Route: 042
  3. OCREVUS [Suspect]
     Active Substance: OCRELIZUMAB
     Route: 042
  4. OCREVUS [Suspect]
     Active Substance: OCRELIZUMAB
     Route: 042
  5. OCREVUS [Suspect]
     Active Substance: OCRELIZUMAB
     Route: 042
  6. OCREVUS [Suspect]
     Active Substance: OCRELIZUMAB
     Route: 042
  7. OCREVUS [Suspect]
     Active Substance: OCRELIZUMAB
     Route: 042
  8. OCREVUS [Suspect]
     Active Substance: OCRELIZUMAB
     Route: 042
  9. CIPRALEX [Concomitant]
     Active Substance: ESCITALOPRAM OXALATE
     Indication: Anxiety
  10. CONCERTA [Concomitant]
     Active Substance: METHYLPHENIDATE HYDROCHLORIDE
     Indication: Attention deficit hyperactivity disorder
  11. TRAZODONE [Concomitant]
     Active Substance: TRAZODONE HYDROCHLORIDE
     Dosage: FREQUENCY TEXT:AS REQUIRED
  12. SOLU-MEDROL [Concomitant]
     Active Substance: METHYLPREDNISOLONE SODIUM SUCCINATE
  13. BENADRYL [Concomitant]
     Active Substance: DIPHENHYDRAMINE HYDROCHLORIDE
  14. SODIUM CHLORIDE [Concomitant]
     Active Substance: SODIUM CHLORIDE

REACTIONS (9)
  - Infusion related reaction [Recovered/Resolved]
  - Infusion related reaction [Recovering/Resolving]
  - Stomatitis [Recovered/Resolved]
  - Fatigue [Not Recovered/Not Resolved]
  - Dizziness [Not Recovered/Not Resolved]
  - Limb discomfort [Not Recovered/Not Resolved]
  - Infusion related reaction [Recovered/Resolved]
  - Back pain [Not Recovered/Not Resolved]
  - SARS-CoV-2 test positive [Unknown]

NARRATIVE: CASE EVENT DATE: 20180216
